FAERS Safety Report 17768981 (Version 1)
Quarter: 2020Q2

REPORT INFORMATION
  Report Type: Spontaneous
  Country: US (occurrence: US)
  Receive Date: 20200512
  Receipt Date: 20200512
  Transmission Date: 20200714
  Serious: No
  Sender: FDA-Public Use
  Company Number: US-TEVA-2020-US-1233409

PATIENT
  Age: 72 Year
  Sex: Female

DRUGS (5)
  1. PROVIGIL [Suspect]
     Active Substance: MODAFINIL
     Indication: ATTENTION DEFICIT HYPERACTIVITY DISORDER
     Dosage: 200 MILLIGRAM DAILY;
     Route: 065
     Dates: start: 20200503
  2. PROVIGIL [Suspect]
     Active Substance: MODAFINIL
     Indication: ASTHENIA
  3. SYNTHROID [Concomitant]
     Active Substance: LEVOTHYROXINE SODIUM
     Route: 065
  4. ESTRACE [Concomitant]
     Active Substance: ESTRADIOL
     Route: 065
  5. NEXIUM [Concomitant]
     Active Substance: ESOMEPRAZOLE MAGNESIUM
     Route: 065

REACTIONS (2)
  - Hypervigilance [Unknown]
  - Insomnia [Unknown]
